FAERS Safety Report 5408522-1 (Version None)
Quarter: 2007Q3

REPORT INFORMATION
  Report Type: 
  Country: None (occurrence: None)
  Receive Date: 20070808
  Receipt Date: 20070802
  Transmission Date: 20080115
  Serious: Yes (Hospitalization)
  Sender: FDA-Public Use
  Company Number: HQWYE373702AUG07

PATIENT
  Sex: Male

DRUGS (3)
  1. CORDARONE [Suspect]
     Indication: ATRIAL FIBRILLATION
     Route: 048
     Dates: end: 20070703
  2. CORDARONE [Interacting]
     Route: 048
     Dates: start: 20070703
  3. PREVISCAN [Interacting]
     Indication: ATRIAL FIBRILLATION
     Dosage: ALTERNATIVELY 10MG OR 15MG
     Route: 048
     Dates: end: 20070705

REACTIONS (4)
  - DRUG INEFFECTIVE [None]
  - DRUG INTERACTION [None]
  - INTERNATIONAL NORMALISED RATIO INCREASED [None]
  - PHOTOSENSITIVITY REACTION [None]
